FAERS Safety Report 9851659 (Version 1)
Quarter: 2014Q1

REPORT INFORMATION
  Report Type: Spontaneous
  Country: US (occurrence: US)
  Receive Date: 20140129
  Receipt Date: 20140129
  Transmission Date: 20141002
  Serious: No
  Sender: FDA-Public Use
  Company Number: US-009507513-1401USA002394

PATIENT
  Age: 22 Year
  Sex: Female
  Weight: 106.12 kg

DRUGS (1)
  1. NEXPLANON [Suspect]
     Indication: CONTRACEPTION
     Dosage: UNK
     Route: 059
     Dates: start: 20130624, end: 20131227

REACTIONS (3)
  - Menstrual disorder [Unknown]
  - Device difficult to use [Recovered/Resolved]
  - Device breakage [Unknown]
